FAERS Safety Report 8495256-2 (Version None)
Quarter: 2012Q3

REPORT INFORMATION
  Report Type: 
  Country: None (occurrence: None)
  Receive Date: 20120709
  Receipt Date: 20120703
  Transmission Date: 20120928
  Serious: Yes (Death)
  Sender: FDA-Public Use
  Company Number: JP-ELI_LILLY_AND_COMPANY-JP201204005784

PATIENT
  Sex: Male
  Weight: 61 kg

DRUGS (6)
  1. DULOXETINE HYDROCHLORIDE [Suspect]
     Dosage: 60 MG, QD
     Route: 048
     Dates: start: 20110322, end: 20110728
  2. MAGLAX [Concomitant]
     Indication: GASTRITIS
     Dosage: UNK
     Dates: end: 20110811
  3. DULOXETINE HYDROCHLORIDE [Suspect]
     Indication: MAJOR DEPRESSION
     Dosage: 20 MG, QD
     Route: 048
     Dates: start: 20110125, end: 20110131
  4. DULOXETINE HYDROCHLORIDE [Suspect]
     Dosage: 40 MG, QD
     Route: 048
     Dates: start: 20110201, end: 20110321
  5. LANSOPRAZOLE [Concomitant]
     Indication: GASTRITIS
     Dosage: UNK
     Dates: end: 20110811
  6. GASMOTIN [Concomitant]
     Indication: GASTRITIS
     Dosage: UNK
     Dates: end: 20110811

REACTIONS (1)
  - HEPATIC FUNCTION ABNORMAL [None]
